FAERS Safety Report 8426056-7 (Version None)
Quarter: 2012Q2

REPORT INFORMATION
  Report Type: 
  Country: None (occurrence: None)
  Receive Date: 20120611
  Receipt Date: 20120605
  Transmission Date: 20120825
  Serious: No
  Sender: FDA-Public Use
  Company Number: US-BAYER-2012-056111

PATIENT
  Sex: Female

DRUGS (1)
  1. SAFYRAL [Suspect]
     Dosage: UNK
     Dates: start: 20120214

REACTIONS (1)
  - MENSTRUATION IRREGULAR [None]
